FAERS Safety Report 12739954 (Version 1)
Quarter: 2016Q3

REPORT INFORMATION
  Report Type: Spontaneous
  Country: US (occurrence: US)
  Receive Date: 20160913
  Receipt Date: 20160913
  Transmission Date: 20161109
  Serious: Yes (Other)
  Sender: FDA-Public Use
  Company Number: US-BEH-2016073408

PATIENT
  Sex: Female
  Weight: 64.85 kg

DRUGS (25)
  1. HIZENTRA [Suspect]
     Active Substance: HUMAN IMMUNOGLOBULIN G
     Dosage: 10 G, QW
     Route: 058
  2. MUPIROCIN. [Concomitant]
     Active Substance: MUPIROCIN
  3. ATORVASTATIN [Concomitant]
     Active Substance: ATORVASTATIN
  4. METRONIDAZOLE. [Concomitant]
     Active Substance: METRONIDAZOLE
  5. DOXYCYCLINE. [Concomitant]
     Active Substance: DOXYCYCLINE
  6. OMEPRAZOLE. [Concomitant]
     Active Substance: OMEPRAZOLE
  7. BROVANA [Concomitant]
     Active Substance: ARFORMOTEROL TARTRATE
  8. ASPIRIN. [Concomitant]
     Active Substance: ASPIRIN
  9. EPIPEN [Concomitant]
     Active Substance: EPINEPHRINE
  10. LMX                                /00033401/ [Concomitant]
  11. ALLEGRA [Concomitant]
     Active Substance: FEXOFENADINE HYDROCHLORIDE
  12. NYSTATIN AND TRIAMCINOLONE [Concomitant]
     Active Substance: NYSTATIN\TRIAMCINOLONE ACETONIDE
  13. CALCIUM + D3                       /00944201/ [Concomitant]
     Active Substance: CALCIUM CARBONATE\CHOLECALCIFEROL
  14. MULTIVITAMINS [Concomitant]
     Active Substance: VITAMINS
  15. HIZENTRA [Suspect]
     Active Substance: HUMAN IMMUNOGLOBULIN G
     Indication: IMMUNODEFICIENCY COMMON VARIABLE
     Dosage: 10 G, QW
     Route: 058
     Dates: start: 20110217
  16. HIZENTRA [Suspect]
     Active Substance: HUMAN IMMUNOGLOBULIN G
     Dosage: 8 G, QW
     Route: 058
  17. PREDNISOLONE ACETATE. [Concomitant]
     Active Substance: PREDNISOLONE ACETATE
  18. VITAMIN B COMPLEX [Concomitant]
     Active Substance: CYANOCOBALAMIN\DEXPANTHENOL\NIACINAMIDE\PYRIDOXINE HYDROCHLORIDE\RIBOFLAVIN 5^-PHOSPHATE SODIUM\THIAMINE HYDROCHLORIDE\VITAMIN B COMPLEX
  19. VITAMIN C [Concomitant]
     Active Substance: ASCORBIC ACID
  20. ALBUTEROL                          /00139501/ [Concomitant]
     Active Substance: ALBUTEROL
  21. VENTOLIN [Concomitant]
     Active Substance: ALBUTEROL SULFATE
  22. VITAMIN E                          /00110501/ [Concomitant]
     Active Substance: TOCOPHEROL
  23. CLONAZEPAM. [Concomitant]
     Active Substance: CLONAZEPAM
  24. DIPHENHYDRAMINE. [Concomitant]
     Active Substance: DIPHENHYDRAMINE
  25. METOPROLOL. [Concomitant]
     Active Substance: METOPROLOL

REACTIONS (3)
  - Fatigue [Unknown]
  - Respiratory tract infection [Unknown]
  - Pyrexia [Unknown]
